FAERS Safety Report 9272946 (Version 1)
Quarter: 2013Q2

REPORT INFORMATION
  Report Type: Spontaneous
  Country: CA (occurrence: CA)
  Receive Date: 20130506
  Receipt Date: 20130506
  Transmission Date: 20140414
  Serious: Yes (Hospitalization, Other)
  Sender: FDA-Public Use
  Company Number: CA-ELI_LILLY_AND_COMPANY-CA201304008237

PATIENT
  Age: 66 Year
  Sex: Female

DRUGS (9)
  1. FORTEO [Suspect]
     Indication: OSTEOPOROSIS
     Dosage: 20 UNK, UNK
     Route: 058
     Dates: start: 20110524
  2. CANDESARTAN [Concomitant]
  3. METOPROLOL [Concomitant]
  4. INDAPAMIDE [Concomitant]
  5. CITALOPRAM [Concomitant]
  6. AMLODIPINE [Concomitant]
  7. PLAVIX [Concomitant]
  8. CRESTOR [Concomitant]
  9. VITAMIN D [Concomitant]

REACTIONS (1)
  - Cerebrovascular accident [Recovering/Resolving]
